FAERS Safety Report 6263951-1 (Version None)
Quarter: 2009Q3

REPORT INFORMATION
  Report Type: 
  Country: None (occurrence: None)
  Receive Date: 20090710
  Receipt Date: 20090624
  Transmission Date: 20100115
  Serious: Yes (Other)
  Sender: FDA-Public Use
  Company Number: US-ASTRAZENECA-2009UW17535

PATIENT
  Age: 636 Month
  Sex: Female
  Weight: 61.2 kg

DRUGS (2)
  1. SEROQUEL [Suspect]
     Indication: SLEEP DISORDER
     Route: 048
     Dates: start: 20090604
  2. LITHIUM CARBONATE [Concomitant]

REACTIONS (9)
  - ARTHRITIS [None]
  - BACK PAIN [None]
  - DEPRESSED LEVEL OF CONSCIOUSNESS [None]
  - FALL [None]
  - IMPAIRED DRIVING ABILITY [None]
  - MUSCLE INJURY [None]
  - PAIN [None]
  - PAIN IN EXTREMITY [None]
  - SEDATION [None]
